FAERS Safety Report 5673688-5 (Version None)
Quarter: 2008Q1

REPORT INFORMATION
  Report Type: 
  Country: None (occurrence: None)
  Receive Date: 20080319
  Receipt Date: 20080307
  Transmission Date: 20080703
  Serious: Yes (Hospitalization, Other)
  Sender: FDA-Public Use
  Company Number: GR-PFIZER INC-2008003214

PATIENT
  Age: 59 Year
  Sex: Male
  Weight: 68 kg

DRUGS (2)
  1. SUTENT [Suspect]
     Indication: RENAL CANCER METASTATIC
     Dates: start: 20071210, end: 20080110
  2. CEFDITOREN [Suspect]
     Indication: RESPIRATORY TRACT INFECTION
     Dosage: TEXT:400

REACTIONS (3)
  - GASTRIC ULCER [None]
  - MELAENA [None]
  - OESOPHAGEAL ULCER [None]
